FAERS Safety Report 19857388 (Version 5)
Quarter: 2021Q4

REPORT INFORMATION
  Report Type: Other
  Country: FR (occurrence: FR)
  Receive Date: 20210921
  Receipt Date: 20211118
  Transmission Date: 20220303
  Serious: Yes (Life-Threatening, Hospitalization, Other)
  Sender: FDA-Public Use
  Company Number: FR-CELLTRION INC.-2021FR011476

PATIENT

DRUGS (5)
  1. TRASTUZUMAB [Suspect]
     Active Substance: TRASTUZUMAB
     Indication: Hormone receptor positive breast cancer
     Dosage: 6 MG/KG, EVERY 3 WEEKS (CUMULATIVE DOSE TO FIRST REACTION:202.236 MG/KG)
     Dates: start: 20190705, end: 20210528
  2. FULVESTRANT [Suspect]
     Active Substance: FULVESTRANT
     Indication: Hormone receptor positive breast cancer
     Dosage: 500 MG, EVERY 4 WEEKS
     Dates: start: 20190705
  3. PIPERACILLIN SODIUM\TAZOBACTAM SODIUM [Suspect]
     Active Substance: PIPERACILLIN SODIUM\TAZOBACTAM SODIUM
     Indication: Product used for unknown indication
     Dosage: ANTIBIOTHERAPY
  4. PERTUZUMAB [Suspect]
     Active Substance: PERTUZUMAB
     Indication: Hormone receptor positive breast cancer
     Dosage: 420 MG, EVERY 3 WEEKS (CUMULATIVE DOSE TO FIRST REACTION: 14156.54 MG)
     Dates: start: 20190705, end: 20210507
  5. PALBOCICLIB [Concomitant]
     Active Substance: PALBOCICLIB
     Indication: Hormone receptor positive breast cancer
     Dosage: 125 MG
     Dates: start: 20190705, end: 20210507

REACTIONS (2)
  - Volvulus [Recovered/Resolved]
  - Pyrexia [Recovered/Resolved]

NARRATIVE: CASE EVENT DATE: 20210510
